FAERS Safety Report 10396733 (Version 9)
Quarter: 2016Q3

REPORT INFORMATION
  Report Type: Spontaneous
  Country: JP (occurrence: JP)
  Receive Date: 20140820
  Receipt Date: 20160708
  Transmission Date: 20161109
  Serious: Yes (Death, Hospitalization, Other)
  Sender: FDA-Public Use
  Company Number: JP-GLAXOSMITHKLINE-B1024707A

PATIENT
  Age: 65 Year
  Sex: Female

DRUGS (12)
  1. ANAFRANIL [Concomitant]
     Active Substance: CLOMIPRAMINE HYDROCHLORIDE
     Dosage: 25 MG, TID
     Route: 065
     Dates: end: 20140709
  2. ANAFRANIL [Concomitant]
     Active Substance: CLOMIPRAMINE HYDROCHLORIDE
     Dosage: 50 MG, TID
     Dates: start: 20140710, end: 20140804
  3. PAXIL [Concomitant]
     Active Substance: PAROXETINE HYDROCHLORIDE
     Dosage: UNK
  4. ZYPREXA [Concomitant]
     Active Substance: OLANZAPINE
     Dosage: UNK
  5. REFLEX [Concomitant]
     Active Substance: MIRTAZAPINE
     Dosage: UNK
  6. ZOLPIDEM TARTRATE. [Concomitant]
     Active Substance: ZOLPIDEM TARTRATE
     Dosage: UNK
  7. LUVOX [Concomitant]
     Active Substance: FLUVOXAMINE MALEATE
     Dosage: 50 MG, TID
     Route: 065
  8. LAMOTRIGINE. [Suspect]
     Active Substance: LAMOTRIGINE
     Indication: DEPRESSIVE SYMPTOM
     Dosage: 25 MG, BID
     Route: 048
     Dates: start: 20140710, end: 20140803
  9. HIRNAMIN [Concomitant]
     Active Substance: PHENOTHIAZINE
     Dosage: 5 MG, QD
     Route: 065
  10. SOLANAX [Concomitant]
     Active Substance: ALPRAZOLAM
     Dosage: UNK
  11. CYMBALTA [Concomitant]
     Active Substance: DULOXETINE HYDROCHLORIDE
     Dosage: UNK
  12. ROHYPNOL [Concomitant]
     Active Substance: FLUNITRAZEPAM
     Dosage: 2 MG, QD
     Route: 065

REACTIONS (25)
  - Drug reaction with eosinophilia and systemic symptoms [Fatal]
  - Altered state of consciousness [Unknown]
  - Epidermal necrosis [Unknown]
  - Quadriplegia [Unknown]
  - Thyroid disorder [Unknown]
  - Neuroleptic malignant syndrome [Unknown]
  - Acute hepatic failure [Fatal]
  - Generalised erythema [Unknown]
  - Intra-abdominal haematoma [Unknown]
  - Stevens-Johnson syndrome [Unknown]
  - Acute kidney injury [Fatal]
  - Blood beta-D-glucan increased [Unknown]
  - Pyrexia [Unknown]
  - Lymphocytic infiltration [Unknown]
  - Cytomegalovirus viraemia [Unknown]
  - Blood pressure decreased [Unknown]
  - Urticaria [Unknown]
  - Multiple organ dysfunction syndrome [Fatal]
  - Sepsis [Unknown]
  - Liver function test increased [Unknown]
  - Candida test positive [Unknown]
  - General physical health deterioration [Unknown]
  - Intensive care unit acquired weakness [Unknown]
  - Drug-induced liver injury [Unknown]
  - Tremor [Unknown]

NARRATIVE: CASE EVENT DATE: 20140802
